FAERS Safety Report 9952259 (Version 1)
Quarter: 2014Q1

REPORT INFORMATION
  Report Type: Report from Study
  Country: US (occurrence: US)
  Receive Date: 20140304
  Receipt Date: 20140304
  Transmission Date: 20141002
  Serious: Yes (Other)
  Sender: FDA-Public Use
  Company Number: US-ABBVIE-13P-163-1073391-00

PATIENT
  Age: 68 Year
  Sex: Female
  Weight: 104.42 kg

DRUGS (17)
  1. HUMIRA [Suspect]
     Indication: RHEUMATOID ARTHRITIS
     Route: 058
     Dates: start: 2006, end: 20130316
  2. HUMIRA [Suspect]
     Indication: PSORIATIC ARTHROPATHY
  3. HUMIRA [Suspect]
     Indication: PSORIASIS
  4. ULTRAM [Suspect]
     Indication: HUMERUS FRACTURE
     Route: 048
     Dates: start: 20130317, end: 20130317
  5. FENTANYL [Suspect]
     Indication: HUMERUS FRACTURE
     Route: 042
     Dates: start: 20130318, end: 20130318
  6. ATENOLOL [Concomitant]
     Indication: HYPERTENSION
     Dosage: 2TABS Q AM 1 Q PM
  7. AMLODIPINE [Concomitant]
     Indication: HYPERTENSION
  8. ISOSORBIDE [Concomitant]
     Indication: CARDIOVASCULAR EVENT PROPHYLAXIS
  9. LOSARTAN [Concomitant]
     Indication: HYPERTENSION
  10. METFORMIN [Concomitant]
     Indication: DIABETES MELLITUS
  11. NOVOLOG [Concomitant]
     Indication: DIABETES MELLITUS
     Dosage: PRIOR TO EACH MEAL
  12. LANTUS [Concomitant]
     Indication: DIABETES MELLITUS
     Dosage: QHS
  13. METHOTREXATE [Concomitant]
     Indication: RHEUMATOID ARTHRITIS
     Dates: end: 20130316
  14. METHOTREXATE [Concomitant]
     Indication: PSORIATIC ARTHROPATHY
  15. PLAVIX [Concomitant]
     Indication: THROMBOSIS PROPHYLAXIS
     Dates: end: 20130402
  16. RANITIDINE [Concomitant]
     Indication: GASTROOESOPHAGEAL REFLUX DISEASE
  17. SIMVASTATIN [Concomitant]
     Indication: BLOOD CHOLESTEROL INCREASED

REACTIONS (3)
  - Fall [Not Recovered/Not Resolved]
  - Humerus fracture [Not Recovered/Not Resolved]
  - Vomiting [Recovered/Resolved]
